FAERS Safety Report 6107193-9 (Version None)
Quarter: 2009Q1

REPORT INFORMATION
  Report Type: 
  Country: None (occurrence: None)
  Receive Date: 20090305
  Receipt Date: 20090305
  Transmission Date: 20090719
  Serious: Yes (Hospitalization)
  Sender: FDA-Public Use
  Company Number: None

PATIENT
  Age: 35 Year
  Sex: Female
  Weight: 59 kg

DRUGS (2)
  1. SOLIRIS [Suspect]
     Indication: PROPHYLAXIS AGAINST TRANSPLANT REJECTION
     Dosage: 1200 MG ONCE IV 600 MG ONCE IV
     Route: 042
     Dates: start: 20090224
  2. SOLIRIS [Suspect]
     Indication: PROPHYLAXIS AGAINST TRANSPLANT REJECTION
     Dosage: 1200 MG ONCE IV 600 MG ONCE IV
     Route: 042
     Dates: start: 20090303

REACTIONS (4)
  - IATROGENIC INJURY [None]
  - PERIPHERAL ARTERY DISSECTION [None]
  - PROCEDURAL COMPLICATION [None]
  - RENAL DISORDER [None]
